FAERS Safety Report 7859239-5 (Version None)
Quarter: 2011Q4

REPORT INFORMATION
  Report Type: 
  Country: None (occurrence: None)
  Receive Date: 20111027
  Receipt Date: 20111027
  Transmission Date: 20120403
  Serious: No
  Sender: FDA-Public Use
  Company Number: None

PATIENT
  Age: 44 Year
  Sex: Male
  Weight: 74.842 kg

DRUGS (1)
  1. CIPROFLOXACIN [Suspect]
     Indication: URINARY TRACT INFECTION
     Dosage: 500 MG
     Route: 048
     Dates: start: 20110625, end: 20110703

REACTIONS (7)
  - PAIN [None]
  - INSOMNIA [None]
  - NO THERAPEUTIC RESPONSE [None]
  - MUSCLE SPASMS [None]
  - IMPAIRED DRIVING ABILITY [None]
  - QUALITY OF LIFE DECREASED [None]
  - MUSCULAR WEAKNESS [None]
